FAERS Safety Report 22272213 (Version 1)
Quarter: 2023Q2

REPORT INFORMATION
  Report Type: Spontaneous
  Country: None (occurrence: US)
  Receive Date: 20230502
  Receipt Date: 20230502
  Transmission Date: 20230721
  Serious: Yes (Other)
  Sender: FDA-Public Use
  Company Number: US-Bio Products Laboratory Ltd-2141007

PATIENT
  Age: 14 Year
  Sex: Female

DRUGS (8)
  1. HUMAN IMMUNOGLOBULIN G [Suspect]
     Active Substance: HUMAN IMMUNOGLOBULIN G
     Indication: Viraemia
     Route: 042
  2. CEFEPIME [Concomitant]
     Active Substance: CEFEPIME HYDROCHLORIDE
  3. FLUCONAZOLE [Concomitant]
     Active Substance: FLUCONAZOLE
     Route: 048
  4. NITAZOXANIDE [Concomitant]
     Active Substance: NITAZOXANIDE
  5. TACROLIMUS [Concomitant]
     Active Substance: TACROLIMUS
  6. PREDNISONE [Concomitant]
     Active Substance: PREDNISONE
  7. EVEROLIMUS [Concomitant]
     Active Substance: EVEROLIMUS
  8. DEXAMETHASONE [Concomitant]
     Active Substance: DEXAMETHASONE

REACTIONS (7)
  - Paralysis [Recovered/Resolved]
  - Myalgia [Unknown]
  - Drug ineffective for unapproved indication [Unknown]
  - Wheezing [Recovered/Resolved]
  - Vision blurred [Recovered/Resolved]
  - Headache [Unknown]
  - Off label use [Unknown]
